FAERS Safety Report 8917315 (Version 3)
Quarter: 2013Q3

REPORT INFORMATION
  Report Type: Spontaneous
  Country: US (occurrence: US)
  Receive Date: 20121120
  Receipt Date: 20130701
  Transmission Date: 20140515
  Serious: Yes (Other)
  Sender: FDA-Public Use
  Company Number: US-ELI_LILLY_AND_COMPANY-US201211002948

PATIENT
  Sex: Female

DRUGS (12)
  1. CYMBALTA [Suspect]
     Indication: DEPRESSION
     Dosage: 60 MG, QD
     Dates: start: 2009
  2. CYMBALTA [Suspect]
     Indication: BIPOLAR DISORDER
     Dosage: 90 MG, QD
  3. CYMBALTA [Suspect]
     Dosage: 60 MG, QD
  4. CYMBALTA [Suspect]
     Dosage: 30 MG, QD
  5. LAMICTAL [Concomitant]
  6. ASPIRIN [Concomitant]
  7. VALIUM [Concomitant]
  8. KLONOPIN [Concomitant]
     Dosage: 1 MG, QD
  9. MULTIVITAMIN [Concomitant]
  10. LUNESTA [Concomitant]
  11. TRAMADOL [Concomitant]
     Dosage: UNK
     Dates: start: 2009
  12. MAGNESIUM [Concomitant]

REACTIONS (28)
  - Loss of consciousness [Unknown]
  - Syncope [Unknown]
  - Fall [Unknown]
  - Concussion [Unknown]
  - Musculoskeletal pain [Not Recovered/Not Resolved]
  - Arthralgia [Not Recovered/Not Resolved]
  - Muscle spasms [Unknown]
  - Arthropathy [Unknown]
  - Abdominal pain upper [Unknown]
  - Hypotension [Unknown]
  - Blood potassium decreased [Unknown]
  - Hypokinesia [Unknown]
  - Muscular weakness [Unknown]
  - Screaming [Unknown]
  - Fear of falling [Unknown]
  - Bone disorder [Unknown]
  - Electrocardiogram PR shortened [Unknown]
  - Chest pain [Unknown]
  - Limb injury [Unknown]
  - Joint injury [Unknown]
  - Balance disorder [Unknown]
  - Mania [Unknown]
  - Intentional drug misuse [Unknown]
  - Weight increased [Unknown]
  - Dizziness [Unknown]
  - Drug withdrawal syndrome [Unknown]
  - Gastrooesophageal reflux disease [Unknown]
  - Vomiting [Unknown]
